FAERS Safety Report 8003797-7 (Version None)
Quarter: 2011Q4

REPORT INFORMATION
  Report Type: 
  Country: None (occurrence: None)
  Receive Date: 20111222
  Receipt Date: 20111220
  Transmission Date: 20120403
  Serious: Yes (Hospitalization, Other)
  Sender: FDA-Public Use
  Company Number: MX-ABBOTT-11P-107-0885287-00

PATIENT
  Sex: Female
  Weight: 75 kg

DRUGS (1)
  1. HUMIRA [Suspect]
     Indication: ANKYLOSING SPONDYLITIS
     Route: 058
     Dates: start: 20110616, end: 20110909

REACTIONS (11)
  - OESOPHAGITIS [None]
  - EAR PAIN [None]
  - IMMUNODEFICIENCY [None]
  - PYREXIA [None]
  - SCIATICA [None]
  - VOMITING [None]
  - GASTRIC INFECTION [None]
  - HIATUS HERNIA [None]
  - GENERALISED OEDEMA [None]
  - EAR INFECTION [None]
  - VAGINAL INFECTION [None]
